FAERS Safety Report 9471882 (Version 3)
Quarter: 2013Q4

REPORT INFORMATION
  Report Type: Spontaneous
  Country: DK (occurrence: DK)
  Receive Date: 20130823
  Receipt Date: 20131009
  Transmission Date: 20140711
  Serious: Yes (Other)
  Sender: FDA-Public Use
  Company Number: DK-ROCHE-1264511

PATIENT
  Sex: Female
  Weight: 69 kg

DRUGS (7)
  1. HERCEPTIN [Suspect]
     Indication: BREAST CANCER
     Dosage: LOADING DOSE: 616 MG
     Route: 042
     Dates: start: 20110418, end: 20121115
  2. XELODA [Suspect]
     Indication: BREAST CANCER
     Route: 048
     Dates: start: 20110322, end: 20111124
  3. LAPATINIB [Suspect]
     Indication: BREAST CANCER
     Route: 065
     Dates: start: 20121105, end: 20121109
  4. VINORELBINE [Concomitant]
     Indication: DISEASE PROGRESSION
     Route: 065
     Dates: start: 20121105, end: 20130807
  5. OXALIPLATIN [Concomitant]
     Indication: BREAST CANCER
     Route: 050
     Dates: start: 20110922
  6. TAXOL [Concomitant]
     Indication: BREAST CANCER
     Route: 050
  7. FASLODEX [Concomitant]
     Indication: BREAST CANCER
     Route: 030
     Dates: start: 20120203, end: 20121026

REACTIONS (2)
  - Disease progression [Unknown]
  - Toxicity to various agents [Unknown]
